FAERS Safety Report 14245206 (Version 2)
Quarter: 2017Q4

REPORT INFORMATION
  Report Type: Report from Study
  Country: FR (occurrence: FR)
  Receive Date: 20171202
  Receipt Date: 20171218
  Transmission Date: 20180321
  Serious: Yes (Hospitalization)
  Sender: FDA-Public Use
  Company Number: FR-BRISTOL-MYERS SQUIBB COMPANY-BMS-2017-107209

PATIENT
  Age: 70 Year
  Sex: Male

DRUGS (1)
  1. NIVOLUMAB [Suspect]
     Active Substance: NIVOLUMAB
     Indication: LUNG NEOPLASM MALIGNANT
     Dosage: 180 MG, UNK
     Route: 042
     Dates: start: 20171005

REACTIONS (1)
  - Motor dysfunction [Recovered/Resolved]

NARRATIVE: CASE EVENT DATE: 20171117
